FAERS Safety Report 11258081 (Version 1)
Quarter: 2015Q3

REPORT INFORMATION
  Report Type: Spontaneous
  Country: US (occurrence: None)
  Receive Date: 20150709
  Receipt Date: 20150709
  Transmission Date: 20151125
  Serious: Yes (Death)
  Sender: FDA-Public Use
  Company Number: None

PATIENT
  Age: 90 Year
  Sex: Male

DRUGS (23)
  1. SENNOSIDES (SENNA) [Concomitant]
  2. OMEPRAZOLE MAGNESIUM. [Concomitant]
     Active Substance: OMEPRAZOLE MAGNESIUM
  3. ALBUTEROL (PROVENTIL/VENTOLIN) [Concomitant]
  4. HYDROCODONE-ACETAMINOPHEN (NORCO) [Concomitant]
  5. REVLIMID [Suspect]
     Active Substance: LENALIDOMIDE
     Indication: PLASMA CELL MYELOMA
     Dosage: X21DAY, 28 DAY
     Route: 048
     Dates: start: 200908, end: 201505
  6. LISINOPRIL (PRINIVIL/ZESTRIL) [Concomitant]
  7. FLOMAX [Concomitant]
     Active Substance: TAMSULOSIN HYDROCHLORIDE
  8. LASIX [Concomitant]
     Active Substance: FUROSEMIDE
  9. LEVOBUNOLOL (BETAGAN) [Concomitant]
  10. MELATONIN [Concomitant]
     Active Substance: MELATONIN
  11. ACETAMINOPHEN (MAPAP) [Concomitant]
  12. NITROGLYCERIN (NITROSTAT) [Concomitant]
  13. ACYCLOVIR (ZOVIRAX) [Concomitant]
  14. FOSAMAX [Concomitant]
     Active Substance: ALENDRONATE SODIUM
  15. AZAPINE (REMERON) [Concomitant]
  16. LASIX [Concomitant]
     Active Substance: FUROSEMIDE
  17. MULTIVITAMIN [Concomitant]
     Active Substance: VITAMINS
  18. INDOMETHACIN. [Concomitant]
     Active Substance: INDOMETHACIN
  19. SPIRONOLACTONE (ALDACTONE) [Concomitant]
  20. CALCITONIN [Concomitant]
     Active Substance: CALCITONIN
  21. SALMON (FORTIOAL) [Concomitant]
  22. DOCUSATE SODIUM (COLACE) [Concomitant]
  23. ASPIRIN. [Concomitant]
     Active Substance: ASPIRIN

REACTIONS (1)
  - Disease progression [None]

NARRATIVE: CASE EVENT DATE: 20150614
